FAERS Safety Report 8394649 (Version 3)
Quarter: 2014Q2

REPORT INFORMATION
  Report Type: Report from Study
  Country: US (occurrence: US)
  Receive Date: 20120207
  Receipt Date: 20140627
  Transmission Date: 20141212
  Serious: Yes (Hospitalization, Other)
  Sender: FDA-Public Use
  Company Number: US-ACTELION-A-US2012-60492

PATIENT
  Age: 73 Year
  Sex: Male

DRUGS (3)
  1. TRACLEER [Suspect]
     Indication: PULMONARY ARTERIAL HYPERTENSION
     Dosage: UNK
     Route: 048
  2. COUMADIN [Concomitant]
  3. ASPIRIN [Concomitant]

REACTIONS (6)
  - Haemorrhage [Unknown]
  - Blood count abnormal [Unknown]
  - Gastrointestinal haemorrhage [Recovered/Resolved]
  - Vascular cauterisation [Recovered/Resolved]
  - Intestinal haemorrhage [Recovering/Resolving]
  - Anaemia [Unknown]
